FAERS Safety Report 9176911 (Version 1)
Quarter: 2013Q1

REPORT INFORMATION
  Report Type: Spontaneous
  Country: US (occurrence: None)
  Receive Date: 20130320
  Receipt Date: 20130320
  Transmission Date: 20140127
  Serious: No
  Sender: FDA-Public Use
  Company Number: None

PATIENT
  Sex: Male

DRUGS (1)
  1. STIVARGA [Suspect]
     Indication: RECTAL CANCER METASTATIC
     Route: 048
     Dates: start: 201211, end: 201202

REACTIONS (2)
  - Drug ineffective [None]
  - Metastasis [None]
